FAERS Safety Report 9388236 (Version 3)
Quarter: 2013Q3

REPORT INFORMATION
  Report Type: Spontaneous
  Country: US (occurrence: US)
  Receive Date: 20130708
  Receipt Date: 20130903
  Transmission Date: 20140515
  Serious: No
  Sender: FDA-Public Use
  Company Number: US-PFIZER INC-2013199389

PATIENT
  Age: 82 Year
  Sex: Male

DRUGS (2)
  1. ATORVASTATIN CALCIUM [Suspect]
     Indication: BLOOD CHOLESTEROL ABNORMAL
     Dosage: 10 MG, 1X/DAY AT BEDTIME
     Dates: start: 20110430, end: 20130731
  2. ATORVASTATIN CALCIUM [Suspect]
     Dosage: UNK

REACTIONS (2)
  - Arthralgia [Unknown]
  - Muscle spasms [Recovering/Resolving]
